FAERS Safety Report 10580835 (Version 1)
Quarter: 2014Q4

REPORT INFORMATION
  Report Type: Spontaneous
  Country: US (occurrence: None)
  Receive Date: 20141112
  Receipt Date: 20141112
  Transmission Date: 20150529
  Serious: Yes (Life-Threatening)
  Sender: FDA-Public Use
  Company Number: None

PATIENT
  Age: 77 Year
  Sex: Female
  Weight: 59.88 kg

DRUGS (1)
  1. VERAPAMIL ER [Suspect]
     Active Substance: VERAPAMIL HYDROCHLORIDE
     Indication: BLOOD PRESSURE
     Dosage: 240M?1 PILL -2 TIMES DAILY ?TWICE DAILY?MOUTH
     Route: 048
     Dates: start: 20131031, end: 20141003

REACTIONS (5)
  - Pulmonary congestion [None]
  - Heart rate decreased [None]
  - Constipation [None]
  - Presyncope [None]
  - Drug ineffective [None]

NARRATIVE: CASE EVENT DATE: 20141003
